FAERS Safety Report 8762306 (Version 2)
Quarter: 2012Q4

REPORT INFORMATION
  Report Type: 
  Country: US (occurrence: US)
  Receive Date: 20120822
  Receipt Date: 20120920
  Transmission Date: 20130627
  Serious: Yes (Death)
  Sender: FDA-Public Use
  Company Number: US-ELI_LILLY_AND_COMPANY-US201208006054

PATIENT
  Sex: Female
  Weight: 33.56 kg

DRUGS (4)
  1. FORTEO [Suspect]
     Dosage: 20 ug, qd
     Route: 058
  2. COMBIVENT [Concomitant]
  3. ZANTAC [Concomitant]
  4. ADVAIR [Concomitant]

REACTIONS (1)
  - Decreased appetite [Fatal]
